FAERS Safety Report 17487651 (Version 1)
Quarter: 2020Q1

REPORT INFORMATION
  Report Type: Spontaneous
  Country: US (occurrence: US)
  Receive Date: 20200303
  Receipt Date: 20200303
  Transmission Date: 20200409
  Serious: No
  Sender: FDA-Public Use
  Company Number: US-ALLERGAN-1910864US

PATIENT
  Sex: Male

DRUGS (4)
  1. SAVELLA [Suspect]
     Active Substance: MILNACIPRAN HYDROCHLORIDE
     Indication: TESTICULAR PAIN
     Dosage: 25 MG, BID
     Route: 048
     Dates: start: 20190311
  2. KEPPRA [Concomitant]
     Active Substance: LEVETIRACETAM
     Dosage: 1500 MG, QD (500MG IN AM AND 1000 MG IN PM)
     Route: 048
  3. TRAMADOL. [Concomitant]
     Active Substance: TRAMADOL
     Indication: PAIN
     Dosage: UNK
  4. SAVELLA [Suspect]
     Active Substance: MILNACIPRAN HYDROCHLORIDE
     Dosage: 50 MG, BID
     Route: 048
     Dates: start: 201902, end: 20190310

REACTIONS (4)
  - Off label use [Unknown]
  - Micturition disorder [Unknown]
  - Condition aggravated [Unknown]
  - Orgasm abnormal [Unknown]
